FAERS Safety Report 19502412 (Version 3)
Quarter: 2021Q3

REPORT INFORMATION
  Report Type: Report from Study
  Country: IT (occurrence: IT)
  Receive Date: 20210707
  Receipt Date: 20210728
  Transmission Date: 20211014
  Serious: Yes (Other)
  Sender: FDA-Public Use
  Company Number: IT-PFIZER INC-2021577432

PATIENT
  Age: 86 Year
  Sex: Male

DRUGS (15)
  1. DARUNAVIR [Interacting]
     Active Substance: DARUNAVIR
     Indication: COVID-19
     Dosage: 800 MG, DAILY
     Route: 065
  2. NITROGLYCERINE [Concomitant]
     Active Substance: NITROGLYCERIN
     Dosage: UNK
     Route: 065
  3. LOPINAVIR [Interacting]
     Active Substance: LOPINAVIR
     Indication: COVID-19
     Dosage: 0.5, 2X/DAY, FOR 7?14 DAYS
     Route: 065
  4. APIXABAN [Interacting]
     Active Substance: APIXABAN
     Dosage: UNK
     Route: 065
  5. HYDROXYCHLOROQUINE [Interacting]
     Active Substance: HYDROXYCHLOROQUINE
     Dosage: 400 MG, 1X/DAY FOR 5?7 DAYS
     Route: 065
  6. CLONIDINE. [Concomitant]
     Active Substance: CLONIDINE
     Dosage: UNK
     Route: 065
  7. POTASSIUM CHLORIDE. [Concomitant]
     Active Substance: POTASSIUM CHLORIDE
     Dosage: UNK
     Route: 065
  8. HYDROXYCHLOROQUINE [Interacting]
     Active Substance: HYDROXYCHLOROQUINE
     Indication: COVID-19
     Dosage: 800 MG, FOR THE FIRST DAY
     Route: 065
  9. FUROSEMIDE. [Concomitant]
     Active Substance: FUROSEMIDE
     Dosage: UNK
     Route: 065
  10. ENOXAPARIN [Interacting]
     Active Substance: ENOXAPARIN
     Indication: COVID-19
     Dosage: UNK UNK, DAILY
     Route: 065
  11. RITONAVIR. [Interacting]
     Active Substance: RITONAVIR
     Indication: COVID-19
     Dosage: UNK, 2X/DAY, FOR 7?14 DAYS
     Route: 065
  12. ATORVASTATIN CALCIUM. [Suspect]
     Active Substance: ATORVASTATIN CALCIUM
     Dosage: UNK
     Route: 065
  13. COBICISTAT [Interacting]
     Active Substance: COBICISTAT
     Indication: COVID-19
     Dosage: 125 MG, DAILY
     Route: 065
  14. RITONAVIR. [Interacting]
     Active Substance: RITONAVIR
     Dosage: 100 MG, 2X/DAY (FOR 7?14 DAYS)
  15. LOPINAVIR [Interacting]
     Active Substance: LOPINAVIR
     Dosage: 400 MG, 2X/DAY (FOR 7?14 DAYS)

REACTIONS (4)
  - Electrocardiogram QT prolonged [Recovering/Resolving]
  - Off label use [Unknown]
  - Drug interaction [Recovering/Resolving]
  - Off label use [Recovering/Resolving]
